FAERS Safety Report 5913536-9 (Version None)
Quarter: 2008Q4

REPORT INFORMATION
  Report Type: 
  Country: None (occurrence: None)
  Receive Date: 20081006
  Receipt Date: 20081001
  Transmission Date: 20090506
  Serious: Yes (Hospitalization, Other)
  Sender: FDA-Public Use
  Company Number: 2008SP017468

PATIENT
  Age: 69 Year
  Sex: Male
  Weight: 74.8435 kg

DRUGS (14)
  1. INTRON A [Suspect]
     Indication: METASTATIC MALIGNANT MELANOMA
     Dosage: SEE IMAGE
     Route: 042
     Dates: start: 20080616, end: 20080626
  2. INTRON A [Suspect]
     Indication: METASTATIC MALIGNANT MELANOMA
     Dosage: SEE IMAGE
     Route: 042
     Dates: start: 20080707, end: 20080718
  3. INTRON A [Suspect]
     Indication: METASTATIC MALIGNANT MELANOMA
     Dosage: SEE IMAGE
     Route: 042
     Dates: start: 20080729, end: 20080729
  4. INTRON A [Suspect]
     Indication: METASTATIC MALIGNANT MELANOMA
     Dosage: SEE IMAGE
     Route: 042
     Dates: start: 20080811, end: 20080820
  5. KW2871 (INVESTIGATIONAL DRUG) [Suspect]
     Indication: METASTATIC MALIGNANT MELANOMA
     Dosage: 9.5 MG; IV
     Route: 042
     Dates: start: 20080618, end: 20080813
  6. COMPAZINE [Concomitant]
  7. ATIVAN [Concomitant]
  8. TYLENOL [Concomitant]
  9. IBUPROFEN [Concomitant]
  10. ZOLOFT [Concomitant]
  11. ZOCOR [Concomitant]
  12. SYNTHROID [Suspect]
  13. ASPIRIN [Concomitant]
  14. ZOLPIHM [Concomitant]

REACTIONS (9)
  - APPENDICITIS PERFORATED [None]
  - CHILLS [None]
  - DEHYDRATION [None]
  - DRUG TOXICITY [None]
  - FATIGUE [None]
  - MYALGIA [None]
  - PAIN IN EXTREMITY [None]
  - PYREXIA [None]
  - SEROSITIS [None]
